FAERS Safety Report 8105532-0 (Version None)
Quarter: 2012Q1

REPORT INFORMATION
  Report Type: 
  Country: None (occurrence: None)
  Receive Date: 20120201
  Receipt Date: 20120126
  Transmission Date: 20120608
  Serious: Yes (Hospitalization, Other)
  Sender: FDA-Public Use
  Company Number: US-PFIZER INC-2009155168

PATIENT
  Sex: Male
  Weight: 159 kg

DRUGS (9)
  1. CELEBREX [Suspect]
     Indication: ARTHRITIS
     Dosage: UNK
  2. CAFFEINE [Suspect]
     Dosage: UNK
  3. ACETAMINOPHEN [Concomitant]
     Indication: BACK PAIN
     Dosage: UNK
  4. ACETAMINOPHEN [Concomitant]
     Indication: ARTHRITIS
  5. GLUCOTROL XL [Suspect]
     Indication: DIABETES MELLITUS
     Dosage: 5 MG, 1X/DAY
     Route: 048
     Dates: start: 19990101
  6. AMIODARONE [Concomitant]
     Indication: ARRHYTHMIA
     Dosage: UNK,DAILY
  7. PERCOCET [Concomitant]
     Indication: SCIATICA
     Dosage: UNK
     Route: 048
  8. GLUCOPHAGE [Suspect]
     Dosage: UNK
  9. CODEINE [Concomitant]
     Indication: BACK PAIN
     Dosage: UNK

REACTIONS (8)
  - COUGH [None]
  - BLISTER [None]
  - BLOOD GLUCOSE DECREASED [None]
  - DIABETIC ULCER [None]
  - MALAISE [None]
  - FALL [None]
  - SKIN LESION [None]
  - NASOPHARYNGITIS [None]
